FAERS Safety Report 5129729-7 (Version None)
Quarter: 2006Q4

REPORT INFORMATION
  Report Type: 
  Country: None (occurrence: None)
  Receive Date: 20061018
  Receipt Date: 20061012
  Transmission Date: 20070319
  Serious: Yes (Hospitalization)
  Sender: FDA-Public Use
  Company Number: ZA-ROCHE-467042

PATIENT
  Age: 16 Year
  Sex: Male

DRUGS (2)
  1. ISOTRETINOIN [Suspect]
     Dosage: REPORTED AS FULL NORMAL COURSE.
     Route: 065
  2. ISOTRETINOIN [Suspect]
     Dosage: REPORTED AS LOW DOSE COURSE.
     Route: 065
     Dates: start: 20060301, end: 20060901

REACTIONS (1)
  - CARDIAC DISORDER [None]
